FAERS Safety Report 5088840-X (Version None)
Quarter: 2006Q3

REPORT INFORMATION
  Report Type: 
  Country: None (occurrence: None)
  Receive Date: 20060824
  Receipt Date: 20060824
  Transmission Date: 20061208
  Serious: Yes (Life-Threatening, Disabling, Other)
  Sender: FDA-Public Use
  Company Number: None

PATIENT
  Age: 41 Year
  Sex: Female
  Weight: 127.0072 kg

DRUGS (2)
  1. ZYPREXA [Suspect]
     Indication: MENTAL DISORDER
     Dosage: 20 MG  ONE A DAY
     Dates: start: 20060201, end: 20060228
  2. ZYPREXA [Suspect]
     Indication: MENTAL DISORDER
     Dosage: 20 MG  ONE A DAY
     Dates: start: 20060501, end: 20060531

REACTIONS (3)
  - ABDOMINAL PAIN [None]
  - ABDOMINAL PAIN UPPER [None]
  - DYSPHAGIA [None]
